FAERS Safety Report 20382264 (Version 1)
Quarter: 2022Q1

REPORT INFORMATION
  Report Type: Spontaneous
  Country: DE (occurrence: DE)
  Receive Date: 20220127
  Receipt Date: 20220127
  Transmission Date: 20220424
  Serious: Yes (Hospitalization, Other)
  Sender: FDA-Public Use
  Company Number: None

PATIENT
  Age: 51 Year
  Sex: Female
  Weight: 78 kg

DRUGS (2)
  1. DIENOGEST\ESTRADIOL VALERATE [Suspect]
     Active Substance: DIENOGEST\ESTRADIOL VALERATE
     Indication: Menopausal symptoms
     Dosage: 1 DF, QD
     Route: 048
     Dates: start: 20211209, end: 20220108
  2. COMIRNATY [Suspect]
     Active Substance: TOZINAMERAN
     Indication: Immunisation
     Dosage: 1 DF
     Route: 030
     Dates: start: 20211118, end: 20211118

REACTIONS (4)
  - Pulmonary embolism [Recovering/Resolving]
  - Syncope [Unknown]
  - Pain in extremity [Unknown]
  - Venous thrombosis [Recovering/Resolving]

NARRATIVE: CASE EVENT DATE: 20220101
